FAERS Safety Report 15492957 (Version 2)
Quarter: 2018Q4

REPORT INFORMATION
  Report Type: Spontaneous
  Country: BR (occurrence: BR)
  Receive Date: 20181012
  Receipt Date: 20181029
  Transmission Date: 20190205
  Serious: Yes (Other)
  Sender: FDA-Public Use
  Company Number: BR-JNJFOC-20181016882

PATIENT
  Age: 61 Year
  Sex: Male

DRUGS (1)
  1. HALDOL [Suspect]
     Active Substance: HALOPERIDOL
     Indication: SCHIZOPHRENIA
     Route: 048

REACTIONS (4)
  - Abnormal behaviour [Not Recovered/Not Resolved]
  - Myocardial infarction [Unknown]
  - Product use complaint [Unknown]
  - Medication error [Unknown]

NARRATIVE: CASE EVENT DATE: 201810
